FAERS Safety Report 20207527 (Version 1)
Quarter: 2021Q4

REPORT INFORMATION
  Report Type: Spontaneous
  Country: DE (occurrence: DE)
  Receive Date: 20211220
  Receipt Date: 20211220
  Transmission Date: 20220303
  Serious: Yes (Hospitalization, Other)
  Sender: FDA-Public Use
  Company Number: None

PATIENT
  Age: 75 Year
  Sex: Female

DRUGS (6)
  1. AMLODIPINE BESYLATE [Suspect]
     Active Substance: AMLODIPINE BESYLATE
     Dosage: 5 MG
     Route: 048
  2. INDAPAMIDE\PERINDOPRIL ERBUMINE [Suspect]
     Active Substance: INDAPAMIDE\PERINDOPRIL ERBUMINE
     Dosage: 1.25MG/5MG, 1X/DAY (1-0-0-0)
     Route: 048
  3. LEVOTHYROXINE SODIUM [Concomitant]
     Active Substance: LEVOTHYROXINE SODIUM
     Dosage: 100 UG, 1X/DAY (1-0-0-0)
     Route: 048
  4. CINNARIZINE\DIMENHYDRINATE [Concomitant]
     Active Substance: CINNARIZINE\DIMENHYDRINATE
     Dosage: 40/20MG, 3X/DAY  (1-1-1-0)
     Route: 048
  5. FOLIC ACID [Concomitant]
     Active Substance: FOLIC ACID
     Dosage: 400 UG, 1X/DAY ( 1-0-0-0)
     Route: 048
  6. B12 ANKERMANN [Concomitant]
     Dosage: 1 MG ( 1-0-0-0)
     Route: 048

REACTIONS (6)
  - Medication error [Unknown]
  - Tachycardia [Unknown]
  - Hypotension [Unknown]
  - Dizziness [Unknown]
  - Atrial fibrillation [Unknown]
  - Thrombin time shortened [Unknown]

NARRATIVE: CASE EVENT DATE: 20210721
